FAERS Safety Report 6501183-X (Version None)
Quarter: 2009Q4

REPORT INFORMATION
  Report Type: 
  Country: None (occurrence: None)
  Receive Date: 20091216
  Receipt Date: 20090910
  Transmission Date: 20100525
  Serious: No
  Sender: FDA-Public Use
  Company Number: A0806690A

PATIENT
  Age: 51 Year
  Sex: Female

DRUGS (2)
  1. COMMIT [Suspect]
     Dates: start: 20090826
  2. FOSAMAX [Concomitant]

REACTIONS (1)
  - NAUSEA [None]
